FAERS Safety Report 25955346 (Version 1)
Quarter: 2025Q4

REPORT INFORMATION
  Report Type: Report from Study
  Country: EU (occurrence: EU)
  Receive Date: 20251024
  Receipt Date: 20251024
  Transmission Date: 20260118
  Serious: Yes (Life-Threatening, Hospitalization, Other)
  Sender: IPSEN BIOPHARMACEUTICALS, INC.
  Company Number: EU-IPSEN Group, Research and Development-2024-03483

PATIENT
  Age: 73 Year
  Sex: Male
  Weight: 77 kg

DRUGS (2)
  1. TAZEMETOSTAT HYDROBROMIDE [Suspect]
     Active Substance: TAZEMETOSTAT HYDROBROMIDE
     Indication: Rectal adenocarcinoma
     Dosage: 800 MG
     Dates: start: 20221108, end: 20221218
  2. IMFINZI [Suspect]
     Active Substance: DURVALUMAB
     Indication: Rectal adenocarcinoma
     Dosage: 1120 MG
     Route: 042
     Dates: start: 20221128, end: 20221128

REACTIONS (2)
  - Cardiogenic shock [Recovered/Resolved]
  - Myocardial infarction [Recovered/Resolved]

NARRATIVE: CASE EVENT DATE: 20221229
